FAERS Safety Report 21387631 (Version 1)
Quarter: 2022Q3

REPORT INFORMATION
  Report Type: Spontaneous
  Country: DE (occurrence: DE)
  Receive Date: 20220928
  Receipt Date: 20220928
  Transmission Date: 20221026
  Serious: Yes (Hospitalization)
  Sender: FDA-Public Use
  Company Number: None

PATIENT
  Age: 58 Year
  Sex: Male
  Weight: 82 kg

DRUGS (8)
  1. PEMETREXED [Suspect]
     Active Substance: PEMETREXED
     Dosage: 500 MG/M2
     Route: 042
  2. CISPLATIN [Suspect]
     Active Substance: CISPLATIN
     Dosage: 75 MG/M2
     Route: 042
  3. ZOLEDRONIC ACID [Suspect]
     Active Substance: ZOLEDRONIC ACID
     Dosage: 4 MG
     Route: 042
  4. FOLIC ACID [Concomitant]
     Active Substance: FOLIC ACID
     Dosage: 0.4 MG, 1-0-0-0
     Route: 048
  5. ETORICOXIB [Concomitant]
     Active Substance: ETORICOXIB
     Dosage: 90 MG, 1-0-0-0
     Route: 048
  6. HYDROMORPHONE [Concomitant]
     Active Substance: HYDROMORPHONE
     Dosage: 4 MG, 2-0-2-0
     Route: 048
  7. METAMIZOLE [Concomitant]
     Active Substance: METAMIZOLE
     Dosage: 40 GTT, 1-1-1-1
     Route: 048
  8. PREGABALIN [Concomitant]
     Active Substance: PREGABALIN
     Dosage: 50 MG, 0-0-0-1
     Route: 048

REACTIONS (7)
  - General physical health deterioration [Unknown]
  - Decreased appetite [Unknown]
  - Arthralgia [Unknown]
  - Constipation [Unknown]
  - Pain [Unknown]
  - Diarrhoea [Unknown]
  - Vomiting [Unknown]
